FAERS Safety Report 20765338 (Version 1)
Quarter: 2022Q2

REPORT INFORMATION
  Report Type: Spontaneous
  Country: US (occurrence: US)
  Receive Date: 20220428
  Receipt Date: 20220428
  Transmission Date: 20220721
  Serious: No
  Sender: FDA-Public Use
  Company Number: US-SA-SAC20220425000186

PATIENT
  Age: 10 Year
  Sex: Male

DRUGS (1)
  1. DUPIXENT [Suspect]
     Active Substance: DUPILUMAB
     Indication: Dermatitis atopic
     Dosage: 600 MG; FREQ : OTHER
     Route: 058
     Dates: start: 20220407, end: 20220407

REACTIONS (2)
  - Product use issue [Unknown]
  - Oral herpes [Unknown]

NARRATIVE: CASE EVENT DATE: 20220407
